FAERS Safety Report 8809701 (Version 2)
Quarter: 2015Q1

REPORT INFORMATION
  Report Type: Report from Study
  Country: US (occurrence: US)
  Receive Date: 20120926
  Receipt Date: 20150312
  Transmission Date: 20150721
  Serious: Yes (Other)
  Sender: FDA-Public Use
  Company Number: US-ROCHE-1091152

PATIENT
  Sex: Female

DRUGS (18)
  1. ACIPHEX [Concomitant]
     Active Substance: RABEPRAZOLE SODIUM
     Route: 048
  2. SUDAFED [Concomitant]
     Active Substance: PSEUDOEPHEDRINE HYDROCHLORIDE
     Route: 048
  3. DIAZEPAM. [Concomitant]
     Active Substance: DIAZEPAM
     Route: 048
  4. FOSAMAX [Concomitant]
     Active Substance: ALENDRONATE SODIUM
     Route: 048
  5. PRILOSEC [Concomitant]
     Active Substance: OMEPRAZOLE MAGNESIUM
     Dosage: 2 TABLETS
     Route: 048
  6. PEPCID [Concomitant]
     Active Substance: FAMOTIDINE
     Route: 048
  7. DEXAMETHASONE SODIUM PHOSPHATE. [Concomitant]
     Active Substance: DEXAMETHASONE SODIUM PHOSPHATE
     Route: 042
  8. CIPRO [Concomitant]
     Active Substance: CIPROFLOXACIN HYDROCHLORIDE
     Dosage: AS NEEDED.
     Route: 048
  9. GAS-X [Concomitant]
     Active Substance: DIMETHICONE
     Route: 048
  10. MYLANTA II [Concomitant]
     Route: 048
  11. FIORICET [Concomitant]
     Active Substance: ACETAMINOPHEN\BUTALBITAL\CAFFEINE
     Indication: PAIN
     Route: 048
  12. DIPHENHYDRAMINE HCL [Concomitant]
     Active Substance: DIPHENHYDRAMINE HYDROCHLORIDE
     Route: 042
  13. CIMETIDINE HCL [Concomitant]
     Route: 042
  14. TAXOL [Concomitant]
     Active Substance: PACLITAXEL
  15. TYLENOL [Concomitant]
     Active Substance: ACETAMINOPHEN
     Dosage: 500-25 MG
     Route: 048
  16. AVASTIN [Suspect]
     Active Substance: BEVACIZUMAB
     Indication: PRODUCT USED FOR UNKNOWN INDICATION
     Dosage: RECIEVED SAME DOSE ON 28/NOV/2005 AND 12/DEC/2005, 27/DEC/2005, 09/JAN/2006, 23/JAN/2006
     Route: 042
     Dates: start: 20051115
  17. WARFARIN SODIUM. [Concomitant]
     Active Substance: WARFARIN SODIUM
     Route: 048
  18. DICYCLOMINE HCL [Concomitant]
     Active Substance: DICYCLOMINE HYDROCHLORIDE
     Route: 048

REACTIONS (9)
  - Irritable bowel syndrome [Unknown]
  - Disease progression [Unknown]
  - Decreased appetite [Unknown]
  - Cough [Unknown]
  - Pain [Unknown]
  - Abdominal pain [Unknown]
  - Dyspnoea [Recovered/Resolved]
  - Discomfort [Unknown]
  - Fatigue [Unknown]
